FAERS Safety Report 24024994 (Version 3)
Quarter: 2024Q3

REPORT INFORMATION
  Report Type: Spontaneous
  Country: FR (occurrence: FR)
  Receive Date: 20240628
  Receipt Date: 20240710
  Transmission Date: 20241016
  Serious: No
  Sender: ROCHE
  Company Number: FR-ROCHE-2630810

PATIENT
  Age: 14 Year
  Sex: Male
  Weight: 53.5 kg

DRUGS (5)
  1. ALECENSA [Suspect]
     Active Substance: ALECTINIB HYDROCHLORIDE
     Indication: Anaplastic large cell lymphoma T- and null-cell types
     Dosage: TWICE A DAY FOR MONTH, MORNING AND EVENING
     Route: 048
  2. ALECENSA [Suspect]
     Active Substance: ALECTINIB HYDROCHLORIDE
     Dosage: TWICE A DAY FOR A MONTH, MORNING AND EVENING
     Route: 048
     Dates: start: 20200720
  3. ALECENSA [Suspect]
     Active Substance: ALECTINIB HYDROCHLORIDE
     Dosage: 4 TABLETS MORNING AND EVENING, TO BE TAKEN WITH FOOD?QS 2 MONTHS
     Route: 048
  4. ALECENSA [Suspect]
     Active Substance: ALECTINIB HYDROCHLORIDE
     Dosage: FOR ONE MONTH, MORNING AND EVENING
     Route: 048
     Dates: start: 20210720
  5. ALECENSA [Suspect]
     Active Substance: ALECTINIB HYDROCHLORIDE
     Dosage: 600 MG, WHICH IS 4 TABLETS, MORNING AND EVENING, TO BE TAKEN WITH FOOD QS: 3 MONTHS
     Route: 048

REACTIONS (2)
  - Off label use [Unknown]
  - No adverse event [Unknown]
